FAERS Safety Report 9939052 (Version 1)
Quarter: 2014Q1

REPORT INFORMATION
  Report Type: Report from Study
  Country: US (occurrence: US)
  Receive Date: 20140303
  Receipt Date: 20140303
  Transmission Date: 20141002
  Serious: No
  Sender: FDA-Public Use
  Company Number: US-ABBVIE-13P-163-1034087-00

PATIENT
  Age: 34 Year
  Sex: Female

DRUGS (8)
  1. HUMIRA [Suspect]
     Indication: CROHN^S DISEASE
     Route: 058
     Dates: start: 201209
  2. VITAMIN B [Concomitant]
     Indication: PRODUCT USED FOR UNKNOWN INDICATION
     Route: 050
  3. VIT D3 [Concomitant]
     Indication: PRODUCT USED FOR UNKNOWN INDICATION
  4. ZYRTEC [Concomitant]
     Indication: HYPERSENSITIVITY
  5. CELEXA [Concomitant]
     Indication: DEPRESSION
  6. KLONOPIN [Concomitant]
     Indication: ANXIETY
  7. FIORICET [Concomitant]
     Indication: MIGRAINE
     Dosage: 50/325/40 MG PRN
  8. TOPAMAX [Concomitant]
     Indication: MIGRAINE PROPHYLAXIS

REACTIONS (5)
  - Migraine [Unknown]
  - Rhinorrhoea [Unknown]
  - Oral herpes [Unknown]
  - Malaise [Unknown]
  - Headache [Unknown]
